FAERS Safety Report 16093835 (Version 1)
Quarter: 2019Q1

REPORT INFORMATION
  Report Type: Report from Study
  Country: AU (occurrence: AU)
  Receive Date: 20190320
  Receipt Date: 20190320
  Transmission Date: 20190418
  Serious: Yes (Life-Threatening, Hospitalization, Other)
  Sender: FDA-Public Use
  Company Number: AU-BRISTOL-MYERS SQUIBB COMPANY-BMS-2018-120640

PATIENT
  Age: 64 Year
  Sex: Male

DRUGS (4)
  1. IPILIMUMAB [Suspect]
     Active Substance: IPILIMUMAB
     Indication: CLEAR CELL RENAL CELL CARCINOMA
     Dosage: 107 MG, UNK
     Route: 065
     Dates: start: 20180910, end: 20181022
  2. PANADOL [Concomitant]
     Active Substance: ACETAMINOPHEN
     Indication: BACK PAIN
     Dosage: 665 MILLIGRAM
     Route: 048
     Dates: start: 20180821
  3. DEXAMETHASONE. [Concomitant]
     Active Substance: DEXAMETHASONE
     Indication: BACK PAIN
     Dosage: 8 MILLIGRAM
     Route: 048
     Dates: start: 20181120
  4. NIVOLUMAB [Suspect]
     Active Substance: NIVOLUMAB
     Indication: CLEAR CELL RENAL CELL CARCINOMA
     Dosage: 240 MG, UNK
     Route: 065
     Dates: start: 20180710, end: 20181022

REACTIONS (8)
  - Scleritis [Unknown]
  - Acute kidney injury [Recovered/Resolved]
  - Deep vein thrombosis [Unknown]
  - Bradycardia [Not Recovered/Not Resolved]
  - Pseudomonas test positive [Unknown]
  - Anaemia [Unknown]
  - Sepsis [Recovered/Resolved]
  - Cellulitis [Recovered/Resolved]

NARRATIVE: CASE EVENT DATE: 20181002
